FAERS Safety Report 11076721 (Version 1)
Quarter: 2015Q2

REPORT INFORMATION
  Report Type: Spontaneous
  Country: US (occurrence: US)
  Receive Date: 20150429
  Receipt Date: 20150429
  Transmission Date: 20150821
  Serious: Yes (Other)
  Sender: FDA-Public Use
  Company Number: US-SA-2015SA054082

PATIENT
  Sex: Female

DRUGS (1)
  1. LANTUS [Suspect]
     Active Substance: INSULIN GLARGINE
     Indication: DIABETES MELLITUS
     Route: 065
     Dates: start: 200907

REACTIONS (4)
  - Retinal detachment [Unknown]
  - Hearing impaired [Unknown]
  - Dialysis [Unknown]
  - Blindness [Unknown]

NARRATIVE: CASE EVENT DATE: 201105
